FAERS Safety Report 5735919-2 (Version None)
Quarter: 2008Q2

REPORT INFORMATION
  Report Type: 
  Country: None (occurrence: None)
  Receive Date: 20080509
  Receipt Date: 20080509
  Transmission Date: 20081010
  Serious: Yes (Hospitalization)
  Sender: FDA-Public Use
  Company Number: None

PATIENT
  Age: 56 Year
  Sex: Female
  Weight: 96.3 kg

DRUGS (6)
  1. LAPATINIB [Suspect]
     Indication: BREAST CANCER
     Dosage: 1000MG DAILY PO
     Route: 048
     Dates: start: 20061010
  2. HYDROCHLOROTHIAZIDE [Concomitant]
  3. LEXAPRO [Concomitant]
  4. ZOMETA [Concomitant]
  5. LAPATINIB [Concomitant]
  6. HERCEPTIN [Concomitant]

REACTIONS (3)
  - COUGH [None]
  - DYSPNOEA [None]
  - PYREXIA [None]
